FAERS Safety Report 20167350 (Version 1)
Quarter: 2021Q4

REPORT INFORMATION
  Report Type: Spontaneous
  Country: US (occurrence: None)
  Receive Date: 20211208
  Receipt Date: 20211208
  Transmission Date: 20220303
  Serious: No
  Sender: FDA-Public Use
  Company Number: None

PATIENT
  Age: 71 Year
  Sex: Female
  Weight: 90 kg

DRUGS (1)
  1. SECRET [Suspect]
     Active Substance: ALUMINUM ZIRCONIUM TETRACHLOROHYDREX GLY
     Indication: Personal hygiene
     Dosage: OTHER QUANTITY : 2 SPRAY(S);?FREQUENCY : TWICE A DAY;?
     Route: 061

REACTIONS (4)
  - Pruritus [None]
  - Dry skin [None]
  - Skin exfoliation [None]
  - Axillary pain [None]

NARRATIVE: CASE EVENT DATE: 20211122
